FAERS Safety Report 18044720 (Version 2)
Quarter: 2020Q3

REPORT INFORMATION
  Report Type: Spontaneous
  Country: BR (occurrence: BR)
  Receive Date: 20200720
  Receipt Date: 20200729
  Transmission Date: 20201103
  Serious: Yes (Other)
  Sender: FDA-Public Use
  Company Number: BR-SA-2020SA183180

PATIENT

DRUGS (3)
  1. PURAN [Concomitant]
     Active Substance: LEVOTHYROXINE SODIUM
     Indication: HYPOTHYROIDISM
     Dosage: 1 DF, QD(ONE PILL BY MORNING )
     Dates: start: 1997
  2. LANTUS [Suspect]
     Active Substance: INSULIN GLARGINE
     Indication: TYPE 2 DIABETES MELLITUS
     Dosage: 15 IU, QD(BY MORNING )
     Dates: start: 2000
  3. CORENE 3 [Concomitant]
     Indication: VITAMIN SUPPLEMENTATION
     Dosage: 1 DF, QD(AT NOON )
     Route: 048
     Dates: start: 2016

REACTIONS (10)
  - Multiple use of single-use product [Unknown]
  - Cognitive disorder [Recovered/Resolved]
  - Device operational issue [Unknown]
  - Incorrect dose administered by device [Unknown]
  - Agitation [Recovered/Resolved]
  - Boredom [Recovered/Resolved]
  - Malaise [Recovered/Resolved]
  - Wrong technique in device usage process [Unknown]
  - Unevaluable event [Recovered/Resolved]
  - Diabetes mellitus inadequate control [Unknown]

NARRATIVE: CASE EVENT DATE: 20200709
